FAERS Safety Report 25356518 (Version 1)
Quarter: 2025Q2

REPORT INFORMATION
  Report Type: Other
  Country: US (occurrence: US)
  Receive Date: 20250526
  Receipt Date: 20250526
  Transmission Date: 20250717
  Serious: Yes (Hospitalization)
  Sender: ANI
  Company Number: US-ANIPHARMA-022857

PATIENT
  Age: 15 Year
  Sex: Male

DRUGS (6)
  1. LORAZEPAM [Suspect]
     Active Substance: LORAZEPAM
     Indication: Catatonia
  2. OLANZAPINE [Concomitant]
     Active Substance: OLANZAPINE
     Indication: Catatonia
  3. LITHIUM [Concomitant]
     Active Substance: LITHIUM
     Indication: Catatonia
  4. DIVALPROEX SODIUM [Concomitant]
     Active Substance: DIVALPROEX SODIUM
     Indication: Catatonia
  5. CLOZAPINE [Concomitant]
     Active Substance: CLOZAPINE
     Indication: Catatonia
  6. LORAZEPAM [Suspect]
     Active Substance: LORAZEPAM
     Indication: Catatonia

REACTIONS (1)
  - Sexually inappropriate behaviour [Unknown]
